FAERS Safety Report 10217218 (Version 1)
Quarter: 2014Q2

REPORT INFORMATION
  Report Type: Spontaneous
  Country: TR (occurrence: TR)
  Receive Date: 20140604
  Receipt Date: 20140604
  Transmission Date: 20141212
  Serious: Yes (Death, Hospitalization)
  Sender: FDA-Public Use
  Company Number: TR-WATSON-2014-12008

PATIENT
  Age: 78 Year
  Sex: Female

DRUGS (5)
  1. METHYLPREDNISOLONE (UNKNOWN) [Suspect]
     Indication: PEMPHIGOID
     Dosage: 32 MG, UNK
     Route: 048
  2. METHYLPREDNISOLONE (UNKNOWN) [Suspect]
     Dosage: 48 MG, UNK
     Route: 048
     Dates: start: 201206
  3. TETRACYCLINE [Concomitant]
     Indication: PEMPHIGOID
     Dosage: UNKNOWN
     Route: 065
  4. NIACINAMIDE [Concomitant]
     Indication: PEMPHIGOID
     Dosage: UNKNOWN
     Route: 065
  5. CLOBETASOL PROPIONATE [Concomitant]
     Indication: PEMPHIGOID
     Dosage: UNKNOWN
     Route: 061

REACTIONS (2)
  - Necrotising fasciitis streptococcal [Fatal]
  - Renal failure acute [Fatal]
